FAERS Safety Report 23168130 (Version 1)
Quarter: 2023Q4

REPORT INFORMATION
  Report Type: Spontaneous
  Country: CN (occurrence: CN)
  Receive Date: 20231109
  Receipt Date: 20231109
  Transmission Date: 20240109
  Serious: Yes (Hospitalization)
  Sender: FDA-Public Use
  Company Number: CN-Merck Healthcare KGaA-2023485687

PATIENT
  Age: 57 Year
  Sex: Female
  Weight: 55 kg

DRUGS (6)
  1. ERBITUX [Suspect]
     Active Substance: CETUXIMAB
     Indication: Tongue neoplasm malignant stage unspecified
     Dosage: 560 MG, UNKNOWN (ONCE)
     Route: 041
     Dates: start: 20231014, end: 20231014
  2. GEMCITABINE HYDROCHLORIDE [Suspect]
     Active Substance: GEMCITABINE HYDROCHLORIDE
     Indication: Tongue neoplasm malignant stage unspecified
     Dosage: 1 G, DAILY
     Route: 041
     Dates: start: 20231014, end: 20231014
  3. CARBOPLATIN [Suspect]
     Active Substance: CARBOPLATIN
     Indication: Tongue neoplasm malignant stage unspecified
     Dosage: 345 MG, DAILY
     Route: 041
     Dates: start: 20231014, end: 20231014
  4. SODIUM CHLORIDE [Concomitant]
     Active Substance: SODIUM CHLORIDE
     Indication: Tongue neoplasm malignant stage unspecified
     Dosage: 400 ML, DAILY
     Route: 041
     Dates: start: 20231014, end: 20231014
  5. SODIUM CHLORIDE [Concomitant]
     Active Substance: SODIUM CHLORIDE
     Dosage: 100 ML, DAILY
     Route: 041
     Dates: start: 20231014, end: 20231014
  6. DEXTROSE [Concomitant]
     Active Substance: DEXTROSE\DEXTROSE MONOHYDRATE
     Indication: Tongue neoplasm malignant stage unspecified
     Dosage: 300 ML, DAILY
     Route: 041
     Dates: start: 20231014, end: 20231014

REACTIONS (1)
  - Myelosuppression [Recovering/Resolving]

NARRATIVE: CASE EVENT DATE: 20231018
